FAERS Safety Report 17228245 (Version 1)
Quarter: 2020Q1

REPORT INFORMATION
  Report Type: Spontaneous
  Country: ES (occurrence: ES)
  Receive Date: 20200103
  Receipt Date: 20200103
  Transmission Date: 20200409
  Serious: Yes (Other)
  Sender: FDA-Public Use
  Company Number: ES-ACCORD-168182

PATIENT
  Age: 6 Year
  Sex: Female
  Weight: 16.5 kg

DRUGS (4)
  1. HYDROCORTISONE. [Concomitant]
     Active Substance: HYDROCORTISONE
     Route: 048
  2. LEVOTHYROXINE. [Concomitant]
     Active Substance: LEVOTHYROXINE
     Route: 048
  3. DESMOPRESSIN [Concomitant]
     Active Substance: DESMOPRESSIN
     Indication: POLYURIA
     Dosage: DESMOPRESSIN 5 MICROG EVERY 12 HOURS NASALLY
     Route: 045
  4. LEVETIRACETAM. [Suspect]
     Active Substance: LEVETIRACETAM
     Indication: EPILEPSY
     Dosage: LEVETIRACETAM 20 MG/KG/DAY ORALLY IN TWO DOSES
     Route: 048

REACTIONS (2)
  - Oliguria [Unknown]
  - Urine output decreased [Recovered/Resolved]
